FAERS Safety Report 7306167-X (Version None)
Quarter: 2011Q1

REPORT INFORMATION
  Report Type: 
  Country: None (occurrence: None)
  Receive Date: 20110210
  Receipt Date: 20110201
  Transmission Date: 20110831
  Serious: Yes (Hospitalization, Other)
  Sender: FDA-Public Use
  Company Number: GER/UKI/09/0007440

PATIENT
  Age: 50 Year
  Sex: Male

DRUGS (8)
  1. AMLODIPINE [Concomitant]
  2. SIMVASTATIN [Concomitant]
  3. OLANZAPINE [Suspect]
     Indication: SCHIZOPHRENIA, PARANOID TYPE
     Dosage: 25 MG, 1 IN 1 D
  4. METFORMIN (METFORMIN) [Suspect]
     Indication: TYPE 2 DIABETES MELLITUS
     Dosage: 500 MG, 1 IN 2 D
  5. RISPERIDONE [Suspect]
     Indication: SCHIZOPHRENIA, PARANOID TYPE
     Dosage: 6 MG, 1 IN 1 D, ORAL
     Route: 048
  6. PERINODPRIL (PERINDOPRIL) [Concomitant]
  7. ARIPIPRAZOLE [Suspect]
     Indication: SCHIZOPHRENIA, PARANOID TYPE
     Dosage: 15 MG, 1 IN 1 D
  8. GLICLAZIDE (GLICLAZIDE) [Suspect]
     Indication: TYPE 2 DIABETES MELLITUS
     Dosage: 30 MG, 1 IN 1 D

REACTIONS (7)
  - TYPE 2 DIABETES MELLITUS [None]
  - TREATMENT NONCOMPLIANCE [None]
  - URINARY INCONTINENCE [None]
  - HYPOGLYCAEMIA [None]
  - MENTAL DISORDER [None]
  - CONDITION AGGRAVATED [None]
  - WEIGHT DECREASED [None]
